FAERS Safety Report 9475620 (Version 51)
Quarter: 2018Q4

REPORT INFORMATION
  Report Type: Report from Study
  Country: CA (occurrence: CA)
  Receive Date: 20130826
  Receipt Date: 20181125
  Transmission Date: 20190205
  Serious: Yes (Death, Hospitalization, Other)
  Sender: FDA-Public Use
  Company Number: PHHY2013CA080863

PATIENT
  Age: 51 Year
  Sex: Female

DRUGS (11)
  1. SANDOSTATIN LAR DEPOT [Suspect]
     Active Substance: OCTREOTIDE ACETATE
     Dosage: 30 MG, Q3W
     Route: 030
     Dates: end: 20180528
  2. CULTURELLE [Concomitant]
     Active Substance: LACTOBACILLUS RHAMNOSUS
     Indication: PRODUCT USED FOR UNKNOWN INDICATION
     Route: 065
  3. SANDOSTATIN [Suspect]
     Active Substance: OCTREOTIDE ACETATE
     Indication: NEUROENDOCRINE TUMOUR
     Dosage: UNK ONCE/SINGLE (TEST DOSE)
     Route: 058
     Dates: start: 20130423, end: 20130423
  4. CAPECITABINE SANDOZ [Suspect]
     Active Substance: CAPECITABINE
     Indication: PRODUCT USED FOR UNKNOWN INDICATION
     Dosage: 2 DF, BID
     Route: 048
  5. IMMUNOGLOBULIN NOS [Suspect]
     Active Substance: IMMUNE GLOBULIN NOS
     Dosage: 3 VIALS FOR 2 DAYS
     Route: 042
     Dates: start: 20180209
  6. NEXIUM [Concomitant]
     Active Substance: ESOMEPRAZOLE MAGNESIUM
     Indication: PRODUCT USED FOR UNKNOWN INDICATION
     Dosage: UNK UNK, BID
     Route: 065
     Dates: start: 2017
  7. TEMOZOLOMIDE. [Concomitant]
     Active Substance: TEMOZOLOMIDE
     Indication: PRODUCT USED FOR UNKNOWN INDICATION
     Dosage: 140 MG, QD (ON DAYS 10-14)
     Route: 065
     Dates: end: 20140128
  8. COTAZYM [Concomitant]
     Active Substance: PANCRELIPASE
     Indication: PRODUCT USED FOR UNKNOWN INDICATION
     Route: 065
  9. SANDOSTATIN LAR DEPOT [Suspect]
     Active Substance: OCTREOTIDE ACETATE
     Indication: NEUROENDOCRINE TUMOUR
     Dosage: 30 MG (QMO) EVERY 4 WEEKS
     Route: 030
     Dates: start: 20130624
  10. IMMUNOGLOBULIN NOS [Suspect]
     Active Substance: IMMUNE GLOBULIN NOS
     Indication: PRODUCT USED FOR UNKNOWN INDICATION
     Dosage: 3 VIALS FOR 2 DAYS
     Route: 042
     Dates: start: 20180208
  11. SULCRATE [Concomitant]
     Active Substance: SUCRALFATE
     Indication: PRODUCT USED FOR UNKNOWN INDICATION
     Dosage: 1GM/5ML (4 TIMES A DAY) 1 TEA SPOON 4 TIMES DAILY
     Route: 065
     Dates: start: 2017

REACTIONS (77)
  - Back pain [Unknown]
  - Haemorrhoids [Unknown]
  - Malaise [Recovered/Resolved]
  - Frequent bowel movements [Unknown]
  - Underdose [Unknown]
  - Needle issue [Unknown]
  - Constipation [Unknown]
  - Nausea [Recovering/Resolving]
  - Injection site pain [Unknown]
  - Blood magnesium decreased [Unknown]
  - Asthenia [Unknown]
  - Metastases to liver [Unknown]
  - Haemoglobin decreased [Unknown]
  - Body temperature decreased [Unknown]
  - Thrombophlebitis superficial [Unknown]
  - Pallor [Unknown]
  - Early satiety [Unknown]
  - Contusion [Not Recovered/Not Resolved]
  - Burning sensation [Unknown]
  - Decreased appetite [Not Recovered/Not Resolved]
  - Injection site erythema [Recovered/Resolved]
  - Injection site swelling [Unknown]
  - Blood calcium decreased [Unknown]
  - Muscle spasms [Unknown]
  - Movement disorder [Unknown]
  - Crepitations [Unknown]
  - Feeling abnormal [Unknown]
  - Vulval disorder [Unknown]
  - Abdominal pain upper [Unknown]
  - Tachycardia [Unknown]
  - Cholelithiasis [Unknown]
  - Blood pressure diastolic increased [Unknown]
  - Stress [Unknown]
  - Hot flush [Unknown]
  - Pyrexia [Recovered/Resolved]
  - Somnolence [Unknown]
  - Chest discomfort [Unknown]
  - Erythema [Unknown]
  - Death [Fatal]
  - Facial asymmetry [Unknown]
  - Rales [Unknown]
  - Pain [Recovering/Resolving]
  - Infection [Recovered/Resolved]
  - Nasopharyngitis [Unknown]
  - Upper respiratory tract infection [Recovering/Resolving]
  - Fatigue [Unknown]
  - Muscle swelling [Unknown]
  - Abdominal distension [Recovering/Resolving]
  - Platelet count decreased [Not Recovered/Not Resolved]
  - Hypertension [Unknown]
  - Gastrointestinal disorder [Unknown]
  - Lethargy [Not Recovered/Not Resolved]
  - Mass [Unknown]
  - Faeces discoloured [Unknown]
  - Dyspnoea [Unknown]
  - Vomiting [Unknown]
  - Headache [Recovered/Resolved]
  - Productive cough [Unknown]
  - Breast pain [Unknown]
  - Chills [Unknown]
  - Blood pressure decreased [Unknown]
  - Pain in extremity [Recovering/Resolving]
  - Weight decreased [Unknown]
  - Cough [Unknown]
  - Malaise [Recovering/Resolving]
  - Abdominal discomfort [Unknown]
  - Flatulence [Recovering/Resolving]
  - Liver abscess [Recovering/Resolving]
  - Malignant neoplasm progression [Unknown]
  - Angina bullosa haemorrhagica [Unknown]
  - Fear [Unknown]
  - Flushing [Unknown]
  - Night sweats [Unknown]
  - Swelling [Recovering/Resolving]
  - Inappropriate schedule of product administration [Unknown]
  - Abdominal pain [Recovered/Resolved]
  - Diarrhoea [Recovered/Resolved]

NARRATIVE: CASE EVENT DATE: 20130624
